FAERS Safety Report 8487537 (Version 6)
Quarter: 2013Q3

REPORT INFORMATION
  Report Type: Spontaneous
  Country: US (occurrence: US)
  Receive Date: 20120402
  Receipt Date: 20130822
  Transmission Date: 20140515
  Serious: Yes (Hospitalization, Disabling, Other)
  Sender: FDA-Public Use
  Company Number: US-MERCK SHARP + DOHME D.O.O.-1203USA03426

PATIENT
  Sex: Female
  Weight: 62.6 kg

DRUGS (8)
  1. FOSAMAX [Suspect]
     Indication: OSTEOPOROSIS
     Dosage: 10  MG, UNK
     Route: 048
     Dates: start: 19970701
  2. FOSAMAX [Suspect]
     Dosage: 70  MG, QW
     Route: 048
     Dates: start: 20010621, end: 20030103
  3. FOSAMAX [Suspect]
     Dosage: 70 MG, UNK
     Route: 048
     Dates: end: 20030918
  4. FOSAMAX [Suspect]
     Dosage: 70 MG, QW
     Route: 048
     Dates: end: 200607
  5. FOSAMAX [Suspect]
     Indication: OSTEOPOROSIS
     Route: 048
     Dates: start: 1995
  6. BONIVA [Suspect]
     Indication: OSTEOPOROSIS
     Dosage: 150  MG, UNK
     Route: 048
     Dates: start: 20060606, end: 200906
  7. ATENOLOL [Concomitant]
     Indication: HYPERTENSION
  8. FOSAMAX [Suspect]
     Indication: OSTEOPOROSIS
     Dosage: 70 MG, UNK
     Route: 048
     Dates: start: 20091020, end: 20100703

REACTIONS (41)
  - Femur fracture [Not Recovered/Not Resolved]
  - Intramedullary rod insertion [Unknown]
  - Femur fracture [Recovering/Resolving]
  - Bone density decreased [Unknown]
  - Osteoporosis [Unknown]
  - Multiple fractures [Unknown]
  - Femur fracture [Unknown]
  - Haemorrhagic anaemia [Recovering/Resolving]
  - Atelectasis [Recovering/Resolving]
  - Depression [Not Recovered/Not Resolved]
  - Anxiety [Not Recovered/Not Resolved]
  - Schizophrenia [Not Recovered/Not Resolved]
  - Bladder transitional cell carcinoma [Unknown]
  - Tooth disorder [Not Recovered/Not Resolved]
  - Blood cholesterol increased [Not Recovered/Not Resolved]
  - Poor quality sleep [Not Recovered/Not Resolved]
  - Vitamin D deficiency [Not Recovered/Not Resolved]
  - Fall [Unknown]
  - Fall [Unknown]
  - Balance disorder [Unknown]
  - Balance disorder [Unknown]
  - Arthropathy [Unknown]
  - Rotator cuff syndrome [Unknown]
  - Synovial cyst [Unknown]
  - Cardiomegaly [Unknown]
  - Sinusitis [Unknown]
  - Otitis media [Unknown]
  - Meniscus injury [Unknown]
  - Uterine disorder [Unknown]
  - Endometrial disorder [Unknown]
  - Menorrhagia [Unknown]
  - Weight decreased [Unknown]
  - Stress urinary incontinence [Not Recovered/Not Resolved]
  - Nephrolithiasis [Unknown]
  - Bladder fibrosis [Not Recovered/Not Resolved]
  - Breast calcifications [Unknown]
  - Uterine disorder [Unknown]
  - Rib fracture [Recovering/Resolving]
  - Dysphagia [Recovered/Resolved]
  - Arthralgia [Not Recovered/Not Resolved]
  - Constipation [Not Recovered/Not Resolved]
